FAERS Safety Report 25810617 (Version 1)
Quarter: 2025Q3

REPORT INFORMATION
  Report Type: Spontaneous
  Country: US (occurrence: US)
  Receive Date: 20250917
  Receipt Date: 20250917
  Transmission Date: 20251020
  Serious: Yes (Other)
  Sender: JOHNSON AND JOHNSON
  Company Number: US-JNJFOC-20250918960

PATIENT
  Age: 68 Year
  Sex: Female

DRUGS (3)
  1. TALVEY [Suspect]
     Active Substance: TALQUETAMAB-TGVS
     Indication: Plasma cell myeloma
     Dates: start: 20250812
  2. TALVEY [Suspect]
     Active Substance: TALQUETAMAB-TGVS
     Dates: start: 20250814
  3. TALVEY [Suspect]
     Active Substance: TALQUETAMAB-TGVS
     Dates: start: 20250822

REACTIONS (1)
  - Cytokine release syndrome [Unknown]
